FAERS Safety Report 4304171-7 (Version None)
Quarter: 2004Q1

REPORT INFORMATION
  Report Type: 
  Country: None (occurrence: None)
  Receive Date: 20040224
  Receipt Date: 20030327
  Transmission Date: 20041129
  Serious: Yes (Hospitalization)
  Sender: FDA-Public Use
  Company Number: 2003-SW-00013DB

PATIENT
  Age: 69 Year
  Sex: Male

DRUGS (5)
  1. SIFROL TAB. 0.7 MG(TA) (PRAMIPEXOLE) [Suspect]
     Indication: PARKINSON'S DISEASE
     Dosage: 4.2 MG (0.7 MG, SIX TABLETS DAILY)
     Dates: start: 19990310
  2. SINEMET MITE (SINEMET /NET/) (NR) [Concomitant]
  3. SINEMET [Concomitant]
  4. AMANTADIN (AMANTADINE HYDROCHLORIDE) (NR) [Concomitant]
  5. REMERON (ANTIDEPRESSANTS) (NR) [Concomitant]

REACTIONS (4)
  - HEART RATE DECREASED [None]
  - HEART VALVE CALCIFICATION [None]
  - LOSS OF CONSCIOUSNESS [None]
  - SYNCOPE [None]
